FAERS Safety Report 4698726-8 (Version None)
Quarter: 2005Q2

REPORT INFORMATION
  Report Type: 
  Country: None (occurrence: None)
  Receive Date: 20050622
  Receipt Date: 20050414
  Transmission Date: 20051028
  Serious: Yes (Hospitalization)
  Sender: FDA-Public Use
  Company Number: SU-2005-003443

PATIENT
  Age: 52 Year
  Sex: Male

DRUGS (3)
  1. BENICAR HCT [Suspect]
     Indication: HYPERTENSION
     Dosage: 40.125 MG QD PO
     Route: 048
     Dates: start: 20041101, end: 20041201
  2. NORVASC [Concomitant]
  3. TOPROL-XL [Concomitant]

REACTIONS (1)
  - ANGIONEUROTIC OEDEMA [None]
